FAERS Safety Report 16052684 (Version 3)
Quarter: 2019Q2

REPORT INFORMATION
  Report Type: Spontaneous
  Country: JP (occurrence: JP)
  Receive Date: 20190308
  Receipt Date: 20190617
  Transmission Date: 20190711
  Serious: Yes (Hospitalization)
  Sender: FDA-Public Use
  Company Number: JP-ROCHE-2279319

PATIENT
  Age: 77 Year
  Sex: Male

DRUGS (2)
  1. MUCODYNE [Suspect]
     Active Substance: CARBOCYSTEINE
     Indication: INFLUENZA
     Route: 065
  2. XOFLUZA [Suspect]
     Active Substance: BALOXAVIR MARBOXIL
     Indication: INFLUENZA
     Route: 048
     Dates: start: 20190126, end: 20190126

REACTIONS (3)
  - Dyspnoea [Recovered/Resolved]
  - Erythema [Recovering/Resolving]
  - Oedema [Recovered/Resolved]

NARRATIVE: CASE EVENT DATE: 20190203
